FAERS Safety Report 9134473 (Version 1)
Quarter: 2013Q1

REPORT INFORMATION
  Report Type: Spontaneous
  Country: IL (occurrence: IL)
  Receive Date: 20130304
  Receipt Date: 20130304
  Transmission Date: 20140127
  Serious: Yes (Other)
  Sender: FDA-Public Use
  Company Number: IL-JNJFOC-20130215522

PATIENT
  Sex: Male

DRUGS (2)
  1. REMICADE [Suspect]
     Indication: CROHN^S DISEASE
     Route: 042
  2. UNKNOWN MEDICATION [Concomitant]
     Indication: PREMEDICATION
     Route: 065

REACTIONS (2)
  - Blood pressure decreased [Unknown]
  - Cyanosis [Unknown]
